FAERS Safety Report 20037365 (Version 2)
Quarter: 2022Q1

REPORT INFORMATION
  Report Type: Spontaneous
  Country: FR (occurrence: FR)
  Receive Date: 20211105
  Receipt Date: 20220211
  Transmission Date: 20220423
  Serious: No
  Sender: FDA-Public Use
  Company Number: FR-ENDO PHARMACEUTICALS INC-2021-012700

PATIENT
  Age: 69 Year
  Sex: Male
  Weight: 81 kg

DRUGS (10)
  1. EDEX [Suspect]
     Active Substance: ALPROSTADIL
     Indication: Erectile dysfunction
     Dosage: 0.27 ML, DAILY (IN THE LATE MORNING INTRACORPUS CAVERNOSUM)
     Route: 017
     Dates: start: 20211020
  2. EDEX [Suspect]
     Active Substance: ALPROSTADIL
     Indication: Erectile dysfunction
     Dosage: 0.27 ML, DAILY (IN THE LATE MORNING INTRACORPUS CAVERNOSUM)
     Route: 017
     Dates: start: 20211020
  3. EDEX [Suspect]
     Active Substance: ALPROSTADIL
     Indication: Erectile dysfunction
     Dosage: 0.27 ML, DAILY (IN THE LATE MORNING INTRACORPUS CAVERNOSUM)
     Route: 017
     Dates: start: 20211020
  4. EDEX [Suspect]
     Active Substance: ALPROSTADIL
     Indication: Erectile dysfunction
     Dosage: 0.27 ML, DAILY (IN THE LATE MORNING INTRACORPUS CAVERNOSUM)
     Route: 017
     Dates: start: 20211020
  5. EDEX [Suspect]
     Active Substance: ALPROSTADIL
     Dosage: UNK UNKNOWN, UNKNOWN
     Route: 017
     Dates: start: 202007
  6. EDEX [Suspect]
     Active Substance: ALPROSTADIL
     Dosage: UNK UNKNOWN, UNKNOWN
     Route: 017
     Dates: start: 202007
  7. EDEX [Suspect]
     Active Substance: ALPROSTADIL
     Dosage: UNK UNKNOWN, UNKNOWN
     Route: 017
     Dates: start: 202007
  8. EDEX [Suspect]
     Active Substance: ALPROSTADIL
     Dosage: UNK UNKNOWN, UNKNOWN
     Route: 017
     Dates: start: 202007
  9. LEVOTHYROXINE [Concomitant]
     Active Substance: LEVOTHYROXINE
     Indication: Product used for unknown indication
     Dosage: 1 DF, DAILY
     Route: 065
  10. CRESTOR [Concomitant]
     Active Substance: ROSUVASTATIN CALCIUM
     Indication: Product used for unknown indication
     Dosage: 1 DF, DAILY
     Route: 065

REACTIONS (1)
  - Urethral haemorrhage [Recovered/Resolved]

NARRATIVE: CASE EVENT DATE: 20211020
